FAERS Safety Report 25785993 (Version 1)
Quarter: 2025Q3

REPORT INFORMATION
  Report Type: Spontaneous
  Country: US (occurrence: US)
  Receive Date: 20250910
  Receipt Date: 20250910
  Transmission Date: 20251021
  Serious: Yes (Death)
  Sender: MALLINCKRODT
  Company Number: US-MALLINCKRODT-MNK202505530

PATIENT
  Age: 38 Year
  Sex: Male

DRUGS (10)
  1. NITRIC OXIDE [Suspect]
     Active Substance: NITRIC OXIDE
     Indication: Pulmonary hypertension
     Route: 055
  2. HYDROCORTISONE [Concomitant]
     Active Substance: HYDROCORTISONE
  3. DIPHENHYDRAMINE [Concomitant]
     Active Substance: DIPHENHYDRAMINE
  4. FAMOTIDINE [Concomitant]
     Active Substance: FAMOTIDINE
  5. ALBUTEROL SULFATE [Concomitant]
     Active Substance: ALBUTEROL SULFATE
  6. METHYLENE BLUE [Concomitant]
     Active Substance: METHYLENE BLUE
  7. COBAMAMIDE [Concomitant]
     Active Substance: COBAMAMIDE
  8. DOBUTAMINE [Concomitant]
     Active Substance: DOBUTAMINE HYDROCHLORIDE
  9. PROTAMINE [Concomitant]
     Active Substance: PROTAMINE
     Route: 042
  10. HEPARIN [Concomitant]
     Active Substance: HEPARIN SODIUM
     Indication: Anticoagulant therapy

REACTIONS (4)
  - Cardiac arrest [Fatal]
  - Haemodynamic instability [Fatal]
  - Condition aggravated [Fatal]
  - Product use issue [Unknown]
